FAERS Safety Report 7946995-0 (Version None)
Quarter: 2011Q4

REPORT INFORMATION
  Report Type: 
  Country: None (occurrence: None)
  Receive Date: 20111129
  Receipt Date: 20111124
  Transmission Date: 20120403
  Serious: Yes (Hospitalization)
  Sender: FDA-Public Use
  Company Number: BR-PFIZER INC-2011281499

PATIENT
  Age: 60 Year
  Sex: Male

DRUGS (4)
  1. VALIUM [Concomitant]
     Indication: NERVOUSNESS
  2. VALIUM [Concomitant]
     Indication: ANTIDEPRESSANT THERAPY
     Dosage: 10 MG, 1X/DAY AT NIGHT
     Dates: start: 20010101
  3. VARENICLINE TARTRATE [Suspect]
     Dosage: 1 MG, 2X/DAY
     Route: 048
     Dates: start: 20111101, end: 20111101
  4. VARENICLINE TARTRATE [Suspect]
     Indication: SMOKING CESSATION THERAPY
     Dosage: UNK
     Route: 048
     Dates: start: 20111104, end: 20111101

REACTIONS (4)
  - FEELING ABNORMAL [None]
  - FATIGUE [None]
  - TREMOR [None]
  - DYSPNOEA [None]
